FAERS Safety Report 10255459 (Version 1)
Quarter: 2014Q2

REPORT INFORMATION
  Report Type: Spontaneous
  Country: US (occurrence: US)
  Receive Date: 20140624
  Receipt Date: 20140624
  Transmission Date: 20141212
  Serious: Yes (Other)
  Sender: FDA-Public Use
  Company Number: US-JNJCP-30000224454

PATIENT
  Sex: Female
  Weight: 61 kg

DRUGS (4)
  1. NEUTROGENA AGE SHIELD FACE SUNSCREEN LOTION SPF 110 [Suspect]
     Indication: PROPHYLAXIS
     Dosage: DIME SIZE, ONCE
     Route: 061
  2. BETA BLOCKER [Concomitant]
     Indication: MIGRAINE
     Dosage: 25MG
  3. CLARITIN [Concomitant]
     Indication: MULTIPLE ALLERGIES
     Dosage: 10MG
  4. MAXIDE [Concomitant]
     Indication: HYPERTENSION
     Dosage: 25MG

REACTIONS (3)
  - Dyspnoea [Recovered/Resolved]
  - Product expiration date issue [Unknown]
  - Obstructive airways disorder [None]
